FAERS Safety Report 10158644 (Version 3)
Quarter: 2014Q2

REPORT INFORMATION
  Report Type: Spontaneous
  Country: IT (occurrence: IT)
  Receive Date: 20140508
  Receipt Date: 20140626
  Transmission Date: 20141212
  Serious: No
  Sender: FDA-Public Use
  Company Number: IT-009507513-1404ITA002207

PATIENT
  Age: 23 Year
  Sex: Male

DRUGS (2)
  1. TIMOTHY GRASS POLLEN ALLERGEN EXTRACT [Suspect]
     Indication: SEASONAL ALLERGY
     Dosage: 75000, SQ-T, DAILY IN THE MORNING ON AN EMPTY STOMACH 1 HOUR BEFORE BREAKFAST, 3 MTH
     Route: 060
     Dates: start: 201302, end: 201304
  2. SLITONE [Concomitant]
     Dosage: SLIT ONE B 136
     Dates: start: 2012

REACTIONS (4)
  - Eosinophilic oesophagitis [Recovered/Resolved]
  - Chest discomfort [Recovered/Resolved]
  - Dysphagia [Recovered/Resolved]
  - Chest pain [Recovered/Resolved]
